FAERS Safety Report 17576789 (Version 1)
Quarter: 2020Q1

REPORT INFORMATION
  Report Type: Other
  Country: US (occurrence: US)
  Receive Date: 20200324
  Receipt Date: 20200324
  Transmission Date: 20200409
  Serious: No
  Sender: FDA-Public Use
  Company Number: US-ACORDA-ACO_162433_2019

PATIENT
  Sex: Male
  Weight: 69.84 kg

DRUGS (3)
  1. CARBIDOPA AND LEVODOPA [Concomitant]
     Active Substance: CARBIDOPA\LEVODOPA
     Indication: PRODUCT USED FOR UNKNOWN INDICATION
     Dosage: 25/100 MG
     Route: 065
  2. INBRIJA [Suspect]
     Active Substance: LEVODOPA
     Indication: PARKINSON^S DISEASE
     Dosage: 84 MILLIGRAM, PRN
     Dates: start: 20170717
  3. INBRIJA [Suspect]
     Active Substance: LEVODOPA
     Indication: ON AND OFF PHENOMENON
     Dosage: 84 MILLIGRAM, QD
     Dates: start: 201911

REACTIONS (7)
  - Device issue [Unknown]
  - Product residue present [Unknown]
  - Incorrect route of product administration [Unknown]
  - Tremor [Not Recovered/Not Resolved]
  - Wrong technique in product usage process [Unknown]
  - Frustration tolerance decreased [Unknown]
  - Product packaging difficult to open [Not Recovered/Not Resolved]
